FAERS Safety Report 5101402-0 (Version None)
Quarter: 2006Q3

REPORT INFORMATION
  Report Type: 
  Country: None (occurrence: None)
  Receive Date: 20060911
  Receipt Date: 20060907
  Transmission Date: 20061208
  Serious: Yes (Other)
  Sender: FDA-Public Use
  Company Number: US-GLAXOSMITHKLINE-A0619404A

PATIENT
  Age: 71 Year
  Sex: Male

DRUGS (6)
  1. AVANDIA [Suspect]
     Dosage: 4MG PER DAY
     Route: 048
     Dates: start: 20060512
  2. METFORMIN HCL [Concomitant]
  3. GLIPIZIDE [Concomitant]
  4. DIOVAN [Concomitant]
  5. GEMFIBROZIL [Concomitant]
  6. DIGOXIN [Concomitant]

REACTIONS (4)
  - DIARRHOEA [None]
  - HYPOGLYCAEMIA [None]
  - MUSCLE SPASMS [None]
  - WEIGHT INCREASED [None]
